FAERS Safety Report 21690106 (Version 1)
Quarter: 2022Q4

REPORT INFORMATION
  Report Type: Spontaneous
  Country: US (occurrence: US)
  Receive Date: 20221206
  Receipt Date: 20221206
  Transmission Date: 20230113
  Serious: Yes (Other)
  Sender: FDA-Public Use
  Company Number: US-JNJFOC-20221205173

PATIENT
  Age: 6 Decade
  Sex: Female

DRUGS (1)
  1. AMIVANTAMAB [Suspect]
     Active Substance: AMIVANTAMAB
     Indication: Non-small cell lung cancer
     Route: 042

REACTIONS (5)
  - Pyogenic granuloma [Unknown]
  - Skin fissures [Unknown]
  - Dermatitis acneiform [Unknown]
  - Dermatitis [Unknown]
  - Paronychia [Unknown]
